FAERS Safety Report 7448369-8 (Version None)
Quarter: 2011Q2

REPORT INFORMATION
  Report Type: 
  Country: None (occurrence: None)
  Receive Date: 20110429
  Receipt Date: 20100517
  Transmission Date: 20111010
  Serious: No
  Sender: FDA-Public Use
  Company Number: US-ASTRAZENECA-2010SE22430

PATIENT
  Age: 72 Year
  Sex: Female

DRUGS (2)
  1. NEXIUM [Suspect]
     Indication: ERUCTATION
     Route: 048
     Dates: start: 20060101
  2. NEXIUM [Suspect]
     Indication: FLATULENCE
     Route: 048
     Dates: start: 20060101

REACTIONS (1)
  - GASTROINTESTINAL DISORDER [None]
